FAERS Safety Report 7960720-9 (Version None)
Quarter: 2011Q4

REPORT INFORMATION
  Report Type: 
  Country: None (occurrence: None)
  Receive Date: 20111206
  Receipt Date: 20060614
  Transmission Date: 20120403
  Serious: Yes (Other)
  Sender: FDA-Public Use
  Company Number: PHHY2006US009266

PATIENT
  Sex: Female

DRUGS (2)
  1. DIOVAN [Suspect]
  2. ESIDRIX [Suspect]

REACTIONS (1)
  - CARDIAC FAILURE CONGESTIVE [None]
